FAERS Safety Report 13450858 (Version 1)
Quarter: 2017Q2

REPORT INFORMATION
  Report Type: Spontaneous
  Country: US (occurrence: US)
  Receive Date: 20170417
  Receipt Date: 20170417
  Transmission Date: 20170830
  Serious: Yes (Hospitalization, Disabling)
  Sender: FDA-Public Use
  Company Number: None

PATIENT
  Age: 53 Year
  Sex: Female
  Weight: 119.7 kg

DRUGS (6)
  1. PAMIDRONATE [Suspect]
     Active Substance: PAMIDRONATE DISODIUM
     Indication: HYPERCALCAEMIA
     Route: 042
  2. LASIX [Concomitant]
     Active Substance: FUROSEMIDE
  3. METFORMIN [Concomitant]
     Active Substance: METFORMIN HYDROCHLORIDE
  4. VITAMIN B12 [Concomitant]
     Active Substance: CYANOCOBALAMIN
  5. PAMIDRONATE [Suspect]
     Active Substance: PAMIDRONATE DISODIUM
     Indication: HYPERPARATHYROIDISM
     Route: 042
  6. VITAMIN D [Concomitant]
     Active Substance: CHOLECALCIFEROL

REACTIONS (9)
  - Oedema peripheral [None]
  - Alopecia [None]
  - Blood pressure increased [None]
  - Neuropathy peripheral [None]
  - Influenza like illness [None]
  - Injection site infection [None]
  - Epstein-Barr virus infection [None]
  - Pyrexia [None]
  - Bone pain [None]

NARRATIVE: CASE EVENT DATE: 20170107
